FAERS Safety Report 11362035 (Version 1)
Quarter: 2015Q3

REPORT INFORMATION
  Report Type: Spontaneous
  Country: US (occurrence: US)
  Receive Date: 20150810
  Receipt Date: 20150810
  Transmission Date: 20151125
  Serious: Yes (Other)
  Sender: FDA-Public Use
  Company Number: US-GLAXOSMITHKLINE-US2015112637

PATIENT
  Age: 31 Year
  Sex: Female
  Weight: 181.41 kg

DRUGS (20)
  1. COGENTIN [Concomitant]
     Active Substance: BENZTROPINE MESYLATE
  2. PREDNISONE. [Concomitant]
     Active Substance: PREDNISONE
  3. VENTOLIN [Concomitant]
     Active Substance: ALBUTEROL SULFATE
  4. PREVACID [Concomitant]
     Active Substance: LANSOPRAZOLE
  5. TUMS [Concomitant]
     Active Substance: CALCIUM CARBONATE
  6. DOXEPIN [Concomitant]
     Active Substance: DOXEPIN
  7. EVOXAC [Concomitant]
     Active Substance: CEVIMELINE HYDROCHLORIDE
  8. VENTOLIN HFA [Concomitant]
     Active Substance: ALBUTEROL SULFATE
     Indication: ASTHMA
     Dosage: UNK, PRN
     Route: 055
     Dates: start: 20150623
  9. NORA-BE [Concomitant]
  10. SYMBICORT [Concomitant]
     Active Substance: BUDESONIDE\FORMOTEROL FUMARATE DIHYDRATE
  11. TOPAMAX [Concomitant]
     Active Substance: TOPIRAMATE
  12. FAMOTIDINE. [Concomitant]
     Active Substance: FAMOTIDINE
  13. ULTRACET [Concomitant]
     Active Substance: ACETAMINOPHEN\TRAMADOL HYDROCHLORIDE
  14. CELLCEPT [Concomitant]
     Active Substance: MYCOPHENOLATE MOFETIL\MYCOPHENOLATE MOFETIL HYDROCHLORIDE
  15. TIMOLOL MALEATE. [Concomitant]
     Active Substance: TIMOLOL MALEATE
  16. BENLYSTA [Suspect]
     Active Substance: BELIMUMAB
     Indication: SYSTEMIC LUPUS ERYTHEMATOSUS
     Dosage: UNK
     Route: 041
     Dates: start: 201401
  17. VITAMIN D 3 [Concomitant]
  18. MONTELUKAST [Concomitant]
     Active Substance: MONTELUKAST SODIUM
  19. ALENDRONATE [Concomitant]
     Active Substance: ALENDRONATE SODIUM
  20. METFORMIN [Concomitant]
     Active Substance: METFORMIN HYDROCHLORIDE

REACTIONS (5)
  - Dyspnoea [Recovering/Resolving]
  - Chest X-ray abnormal [Unknown]
  - Respiratory tract infection [Unknown]
  - Drug ineffective [Unknown]
  - Asthma [Recovering/Resolving]

NARRATIVE: CASE EVENT DATE: 201402
